FAERS Safety Report 13299266 (Version 1)
Quarter: 2017Q1

REPORT INFORMATION
  Report Type: Spontaneous
  Country: US (occurrence: US)
  Receive Date: 20170306
  Receipt Date: 20170306
  Transmission Date: 20170428
  Serious: No
  Sender: FDA-Public Use
  Company Number: US-SA-2017SA014714

PATIENT
  Age: 55 Year
  Sex: Female

DRUGS (1)
  1. SOLIQUA [Suspect]
     Active Substance: INSULIN GLARGINE\LIXISENATIDE
     Route: 065
     Dates: start: 20170112, end: 20170119

REACTIONS (1)
  - Injection site urticaria [Recovered/Resolved]
